FAERS Safety Report 5318183-8 (Version None)
Quarter: 2007Q2

REPORT INFORMATION
  Report Type: 
  Country: None (occurrence: None)
  Receive Date: 20070507
  Receipt Date: 20070426
  Transmission Date: 20071010
  Serious: Yes (Hospitalization, Other)
  Sender: FDA-Public Use
  Company Number: US-PFIZER INC-2006147474

PATIENT
  Sex: Female
  Weight: 71.7 kg

DRUGS (7)
  1. CHANTIX [Suspect]
     Indication: SMOKING CESSATION THERAPY
     Route: 048
     Dates: start: 20061010, end: 20061013
  2. ATENOLOL [Concomitant]
  3. PLAVIX [Concomitant]
  4. LISINOPRIL [Concomitant]
  5. CADUET [Concomitant]
  6. METHOTREXATE [Concomitant]
  7. LEXAPRO [Concomitant]

REACTIONS (3)
  - AORTIC ANEURYSM [None]
  - DEHYDRATION [None]
  - VOMITING [None]
